FAERS Safety Report 7072783-6 (Version None)
Quarter: 2010Q4

REPORT INFORMATION
  Report Type: 
  Country: None (occurrence: None)
  Receive Date: 20101029
  Receipt Date: 20100312
  Transmission Date: 20110411
  Serious: No
  Sender: FDA-Public Use
  Company Number: A0850004A

PATIENT
  Age: 63 Year
  Sex: Male

DRUGS (7)
  1. ADVAIR DISKUS 100/50 [Suspect]
     Route: 055
     Dates: start: 20080101
  2. ADVAIR DISKUS 100/50 [Suspect]
     Dosage: 1PUFF SIX TIMES PER DAY
     Route: 055
     Dates: start: 20100302, end: 20100304
  3. CELEBREX [Concomitant]
  4. BENTYL [Concomitant]
  5. PREVACID [Concomitant]
  6. LYRICA [Concomitant]
  7. ELAVIL [Concomitant]

REACTIONS (3)
  - OVERDOSE [None]
  - PROSTATOMEGALY [None]
  - URINARY RETENTION [None]
